FAERS Safety Report 6244375-X (Version None)
Quarter: 2009Q2

REPORT INFORMATION
  Report Type: 
  Country: None (occurrence: None)
  Receive Date: 20090625
  Receipt Date: 20090619
  Transmission Date: 20091009
  Serious: Yes (Death, Hospitalization)
  Sender: FDA-Public Use
  Company Number: PHHY2009BR24769

PATIENT
  Sex: Male

DRUGS (2)
  1. EXELON [Suspect]
     Dosage: 3 MG, QD
     Route: 048
     Dates: start: 20080101
  2. DIOVAN [Suspect]
     Indication: CARDIAC DISORDER

REACTIONS (2)
  - DEATH [None]
  - HYPERTENSION [None]
